FAERS Safety Report 8195717-X (Version None)
Quarter: 2012Q1

REPORT INFORMATION
  Report Type: 
  Country: None (occurrence: None)
  Receive Date: 20120308
  Receipt Date: 20120302
  Transmission Date: 20120608
  Serious: Yes (Other)
  Sender: FDA-Public Use
  Company Number: US-BAYER-2012-021705

PATIENT

DRUGS (3)
  1. IBUPROFEN [Concomitant]
  2. ALEVE (CAPLET) [Suspect]
     Route: 048
  3. VICODIN [Concomitant]

REACTIONS (5)
  - HEADACHE [None]
  - DIZZINESS [None]
  - HYPERHIDROSIS [None]
  - HEART RATE DECREASED [None]
  - BLOOD PRESSURE INCREASED [None]
